FAERS Safety Report 5526835-X (Version None)
Quarter: 2007Q4

REPORT INFORMATION
  Report Type: 
  Country: None (occurrence: None)
  Receive Date: 20071127
  Receipt Date: 20071115
  Transmission Date: 20080405
  Serious: Yes (Hospitalization, Other)
  Sender: FDA-Public Use
  Company Number: JP-PFIZER INC-2007092301

PATIENT
  Sex: Male

DRUGS (10)
  1. VFEND [Interacting]
     Indication: ASPERGILLOSIS
     Route: 048
     Dates: start: 20070605, end: 20070605
  2. VFEND [Interacting]
     Route: 048
     Dates: start: 20070606, end: 20070610
  3. RHYTHMY [Interacting]
     Route: 048
  4. PREDNISOLONE [Suspect]
     Route: 048
  5. MEDICON [Concomitant]
     Route: 048
  6. URSO 250 [Concomitant]
     Route: 048
  7. ZANTAC [Concomitant]
     Route: 048
  8. BEZATOL [Concomitant]
     Route: 048
  9. BACTRIM [Concomitant]
     Route: 048
  10. CODEINE SUL TAB [Concomitant]
     Route: 048

REACTIONS (4)
  - DRUG INTERACTION [None]
  - HALLUCINATION, AUDITORY [None]
  - HALLUCINATION, VISUAL [None]
  - INSOMNIA [None]
